FAERS Safety Report 8558414-4 (Version None)
Quarter: 2012Q3

REPORT INFORMATION
  Report Type: 
  Country: None (occurrence: None)
  Receive Date: 20120801
  Receipt Date: 20120730
  Transmission Date: 20120928
  Serious: No
  Sender: FDA-Public Use
  Company Number: US-BAYER-2012-076848

PATIENT

DRUGS (3)
  1. IBPHRONE [Suspect]
     Indication: HEADACHE
     Dosage: 2 DF, UNK
     Dates: start: 20120730
  2. IBUPROFEN (ADVIL) [Suspect]
     Indication: HEADACHE
     Dosage: 4 DF, UNK
     Dates: start: 20120730
  3. ALEVE (CAPLET) [Suspect]
     Indication: HEADACHE
     Dosage: 1 DF, UNK
     Dates: start: 20120730

REACTIONS (1)
  - HEADACHE [None]
